FAERS Safety Report 6982235-7 (Version None)
Quarter: 2010Q3

REPORT INFORMATION
  Report Type: 
  Country: None (occurrence: None)
  Receive Date: 20100914
  Receipt Date: 20091119
  Transmission Date: 20110219
  Serious: Yes (Other)
  Sender: FDA-Public Use
  Company Number: US-PFIZER INC-2009301258

PATIENT
  Sex: Female
  Weight: 55.791 kg

DRUGS (1)
  1. LYRICA [Suspect]
     Indication: FIBROMYALGIA
     Dosage: FREQUENCY: 3X/DAY,
     Route: 048
     Dates: start: 20090201

REACTIONS (7)
  - DIZZINESS [None]
  - EMOTIONAL DISORDER [None]
  - FALL [None]
  - GAIT DISTURBANCE [None]
  - HEAD INJURY [None]
  - INSOMNIA [None]
  - MOOD ALTERED [None]
